FAERS Safety Report 7795071-9 (Version None)
Quarter: 2011Q4

REPORT INFORMATION
  Report Type: 
  Country: None (occurrence: None)
  Receive Date: 20111004
  Receipt Date: 20110923
  Transmission Date: 20120403
  Serious: Yes (Hospitalization)
  Sender: FDA-Public Use
  Company Number: US-BAXTER-2011BH028558

PATIENT
  Age: 57 Year
  Sex: Male

DRUGS (2)
  1. UNSPECIFIED MEDICATIONS [Concomitant]
     Indication: GASTROOESOPHAGEAL REFLUX DISEASE
     Route: 065
  2. DIANEAL [Suspect]
     Indication: PERITONEAL DIALYSIS
     Route: 033
     Dates: start: 20100601

REACTIONS (1)
  - GASTROINTESTINAL ULCER [None]
